FAERS Safety Report 23039899 (Version 1)
Quarter: 2023Q4

REPORT INFORMATION
  Report Type: Spontaneous
  Country: JP (occurrence: JP)
  Receive Date: 20231006
  Receipt Date: 20231006
  Transmission Date: 20240110
  Serious: Yes (Other)
  Sender: FDA-Public Use
  Company Number: JP-BRISTOL-MYERS SQUIBB COMPANY-2023-140496

PATIENT
  Age: 8 Decade
  Sex: Male

DRUGS (9)
  1. ELIQUIS [Suspect]
     Active Substance: APIXABAN
     Indication: Pulmonary embolism
     Route: 048
     Dates: start: 2022, end: 2022
  2. PACLITAXEL [Concomitant]
     Active Substance: PACLITAXEL
     Indication: Adenocarcinoma pancreas
  3. PACLITAXEL [Concomitant]
     Active Substance: PACLITAXEL
     Indication: Metastases to liver
  4. GEMCITABINE [Concomitant]
     Active Substance: GEMCITABINE
     Indication: Metastases to liver
  5. GEMCITABINE [Concomitant]
     Active Substance: GEMCITABINE
     Indication: Adenocarcinoma pancreas
  6. ASPIRIN [Concomitant]
     Active Substance: ASPIRIN
     Indication: Product used for unknown indication
  7. TEGAFUR [Concomitant]
     Active Substance: TEGAFUR
     Indication: Product used for unknown indication
  8. GIMERACIL [Concomitant]
     Active Substance: GIMERACIL
     Indication: Product used for unknown indication
  9. OTERACIL POTASSIUM [Concomitant]
     Active Substance: OTERACIL POTASSIUM
     Indication: Product used for unknown indication

REACTIONS (2)
  - Therapeutic response decreased [Unknown]
  - Tumour embolism [Recovered/Resolved]

NARRATIVE: CASE EVENT DATE: 20220101
